FAERS Safety Report 5510098-5 (Version None)
Quarter: 2007Q4

REPORT INFORMATION
  Report Type: 
  Country: None (occurrence: None)
  Receive Date: 20071108
  Receipt Date: 20070828
  Transmission Date: 20080405
  Serious: Yes (Other)
  Sender: FDA-Public Use
  Company Number: US-ABBOTT-07P-163-0415380-00

PATIENT
  Sex: Female
  Weight: 76.317 kg

DRUGS (2)
  1. KALETRA [Suspect]
     Indication: HIV INFECTION
     Route: 048
  2. LAMIVUDINE + ZIDOVUDINE [Suspect]
     Indication: HIV INFECTION
     Route: 048
     Dates: start: 20031003, end: 20070511

REACTIONS (4)
  - DEPRESSED MOOD [None]
  - FAT TISSUE INCREASED [None]
  - LIPOATROPHY [None]
  - WEIGHT DECREASED [None]
